FAERS Safety Report 9435948 (Version 2)
Quarter: 2013Q3

REPORT INFORMATION
  Report Type: Spontaneous
  Country: DE (occurrence: DE)
  Receive Date: 20130801
  Receipt Date: 20130808
  Transmission Date: 20140515
  Serious: Yes (Other)
  Sender: FDA-Public Use
  Company Number: DE-BAXTER-2013BAX029287

PATIENT
  Sex: 0

DRUGS (7)
  1. HEMOFIL M 500 [Suspect]
     Indication: CEPHALHAEMATOMA
     Route: 065
  2. HEMOFIL M 500 [Suspect]
     Dosage: 150 UNITS
     Route: 065
  3. HEMOFIL M 500 [Suspect]
     Dosage: 750 UNITS
     Route: 065
  4. HEMOFIL M 500 [Suspect]
     Dosage: 500 UNITS
     Route: 065
  5. HEMOFIL M 500 [Suspect]
     Dosage: 250 UNITS
     Route: 065
  6. HEMOFIL M 500 [Suspect]
     Dosage: 500 UNITS
  7. RFVIIA [Suspect]
     Indication: CEREBRAL HAEMORRHAGE
     Route: 065

REACTIONS (9)
  - Cerebral haemorrhage [Unknown]
  - Retinal haemorrhage [Unknown]
  - Cerebral hygroma [Unknown]
  - Convulsion [Recovered/Resolved]
  - Poor venous access [Unknown]
  - Device related infection [Unknown]
  - General physical health deterioration [Unknown]
  - Mydriasis [Unknown]
  - Factor VIII inhibition [Recovered/Resolved]
